FAERS Safety Report 7866652-9 (Version None)
Quarter: 2011Q4

REPORT INFORMATION
  Report Type: 
  Country: None (occurrence: None)
  Receive Date: 20111028
  Receipt Date: 20110719
  Transmission Date: 20120403
  Serious: No
  Sender: FDA-Public Use
  Company Number: US-GLAXOSMITHKLINE-A0937416A

PATIENT
  Age: 33 Year
  Sex: Female

DRUGS (2)
  1. VENTOLIN [Suspect]
     Route: 065
     Dates: start: 20100806
  2. ADVAIR DISKUS 100/50 [Suspect]
     Route: 065
     Dates: start: 20100806

REACTIONS (2)
  - DYSPNOEA [None]
  - CARDIAC DISORDER [None]
